FAERS Safety Report 8430261-3 (Version None)
Quarter: 2012Q2

REPORT INFORMATION
  Report Type: 
  Country: None (occurrence: None)
  Receive Date: 20120323
  Receipt Date: 20110824
  Transmission Date: 20120825
  Serious: Yes (Other)
  Sender: FDA-Public Use
  Company Number: 163-21880-11083154

PATIENT
  Age: 52 Year
  Sex: Female

DRUGS (2)
  1. CHEMOTHERAPY (CHEMOTHERAPEUTICS NOS) [Concomitant]
  2. REVLIMID [Suspect]
     Indication: MULTIPLE MYELOMA
     Dosage: 25 MG, DAILY FOR 21 DAYS, PO
     Route: 048
     Dates: start: 20100301, end: 20110421

REACTIONS (1)
  - CANCER PAIN [None]
